FAERS Safety Report 10013698 (Version 2)
Quarter: 2014Q2

REPORT INFORMATION
  Report Type: Spontaneous
  Country: US (occurrence: US)
  Receive Date: 20140316
  Receipt Date: 20140606
  Transmission Date: 20141212
  Serious: Yes (Other)
  Sender: FDA-Public Use
  Company Number: US-BAYER-2014-035336

PATIENT
  Age: 89 Year
  Sex: Female
  Weight: 68 kg

DRUGS (18)
  1. BAYER CHEWABLE LOW DOSE BABY ASPIRIN TABLET ORANGE [Suspect]
     Indication: ISCHAEMIC HEART DISEASE PROPHYLAXIS
     Dosage: 1 DF, QD
     Route: 048
     Dates: end: 20140228
  2. BAYER CHEWABLE LOW DOSE BABY ASPIRIN TABLET ORANGE [Suspect]
     Indication: INFLAMMATION
  3. BAYER CHEWABLE LOW DOSE BABY ASPIRIN TABLET CHERRY [Suspect]
     Indication: ISCHAEMIC HEART DISEASE PROPHYLAXIS
     Dosage: 1 DF, QD
     Route: 048
  4. BAYER CHEWABLE LOW DOSE BABY ASPIRIN TABLET CHERRY [Suspect]
     Indication: INFLAMMATION
  5. BAYER GENUINE ASPIRIN ORIGINAL STRENGTH [Suspect]
     Route: 048
  6. ZYRTEC [Concomitant]
  7. OMEPRAZOLE [Concomitant]
  8. VITAMIN D [Concomitant]
     Dosage: 1 DF, QD
  9. DIAZIDE [Concomitant]
  10. AMLODIPINE [Concomitant]
     Dosage: 5 MG, QD
  11. CETIRIZINE [Concomitant]
     Dosage: 10 MG, QD
  12. FAMOTIDINE [Concomitant]
     Dosage: 10 MG, QD
  13. HYDROCHLOROTHIAZIDE [Concomitant]
     Dosage: 25 MG, UNK
  14. POTASSIUM CHLORIDE [Concomitant]
     Dosage: 10 MEQ, QD
  15. WARFARIN [Concomitant]
     Dosage: 3 MEQ, UNK
  16. FOLIC ACID [Concomitant]
     Dosage: 40 ?G, QD
  17. FISH OIL [Concomitant]
     Dosage: 1000 MG, QD
  18. VITAMIN B COMPLEX [Concomitant]
     Dosage: 1 DF, QD

REACTIONS (9)
  - Hypersensitivity [Recovered/Resolved]
  - Palpitations [Recovered/Resolved]
  - Syncope [Recovered/Resolved]
  - Obstructive airways disorder [Recovered/Resolved]
  - Pruritus generalised [Recovered/Resolved]
  - Pharyngeal oedema [Recovered/Resolved]
  - Dyspnoea [Recovered/Resolved]
  - Therapeutic response changed [None]
  - Incorrect dose administered [None]
